FAERS Safety Report 9679981 (Version 2)
Quarter: 2014Q1

REPORT INFORMATION
  Report Type: Report from Study
  Country: CA (occurrence: CA)
  Receive Date: 20131110
  Receipt Date: 20140120
  Transmission Date: 20141002
  Serious: Yes (Other)
  Sender: FDA-Public Use
  Company Number: PHHY2013CA125158

PATIENT
  Age: 30 Year
  Sex: Female

DRUGS (2)
  1. GILENYA [Suspect]
     Indication: RELAPSING-REMITTING MULTIPLE SCLEROSIS
     Dosage: 0.5 MG, QD
     Route: 048
     Dates: start: 20110711
  2. SOLUMEDROL [Suspect]
     Dates: start: 20130618, end: 20130618

REACTIONS (9)
  - Central nervous system lesion [Not Recovered/Not Resolved]
  - Optic neuritis [Unknown]
  - Peripheral coldness [Unknown]
  - Sunburn [Unknown]
  - Malaise [Unknown]
  - Multiple sclerosis relapse [Unknown]
  - Dizziness [Not Recovered/Not Resolved]
  - Pruritus [Unknown]
  - Hypersensitivity [Unknown]
